FAERS Safety Report 5262630-7 (Version None)
Quarter: 2007Q1

REPORT INFORMATION
  Report Type: 
  Country: None (occurrence: None)
  Receive Date: 20070312
  Receipt Date: 20070301
  Transmission Date: 20070707
  Serious: Yes (Hospitalization)
  Sender: FDA-Public Use
  Company Number: DK-BOEHRINGER INGELHEIM PHARMACEUTICALS, INC.-2007-SW-00030DB

PATIENT
  Sex: Male
  Weight: 130 kg

DRUGS (5)
  1. SIFROL TAB. 0.18 MG [Suspect]
     Indication: RESTLESS LEGS SYNDROME
     Route: 048
     Dates: start: 20061107, end: 20061201
  2. AMLODIPINE [Concomitant]
  3. SIMVASTATIN [Concomitant]
  4. DIOVAN COMP [Concomitant]
  5. HJERTEMAGNYL [Concomitant]

REACTIONS (4)
  - DEPRESSION [None]
  - IRRITABILITY [None]
  - OBSESSIVE THOUGHTS [None]
  - SUICIDAL IDEATION [None]
